FAERS Safety Report 5649300-8 (Version None)
Quarter: 2008Q1

REPORT INFORMATION
  Report Type: 
  Country: None (occurrence: None)
  Receive Date: 20080304
  Receipt Date: 20071214
  Transmission Date: 20080703
  Serious: No
  Sender: FDA-Public Use
  Company Number: US-BAYER-200716803NA

PATIENT
  Age: 53 Year
  Sex: Female
  Weight: 68 kg

DRUGS (2)
  1. MAGNEVIST [Suspect]
     Indication: NUCLEAR MAGNETIC RESONANCE IMAGING
     Dosage: UNIT DOSE: 14 ML
     Route: 042
     Dates: start: 20071213, end: 20071213
  2. SANDOSTATIN [Concomitant]

REACTIONS (2)
  - COUGH [None]
  - OBSTRUCTION [None]
